FAERS Safety Report 10523346 (Version 1)
Quarter: 2014Q4

REPORT INFORMATION
  Report Type: Spontaneous
  Country: US (occurrence: US)
  Receive Date: 20141016
  Receipt Date: 20141016
  Transmission Date: 20150528
  Serious: No
  Sender: FDA-Public Use
  Company Number: US-009507513-1410USA004539

PATIENT
  Age: 21 Year
  Sex: Female
  Weight: 77.98 kg

DRUGS (2)
  1. NEXPLANON [Suspect]
     Active Substance: ETONOGESTREL
     Indication: MENSTRUATION IRREGULAR
     Dosage: 3 YEAR IMPLANT
     Route: 059
     Dates: start: 20130716
  2. SERTRALINE HYDROCHLORIDE. [Concomitant]
     Active Substance: SERTRALINE HYDROCHLORIDE

REACTIONS (2)
  - Menstruation irregular [Unknown]
  - Product use issue [Unknown]

NARRATIVE: CASE EVENT DATE: 20140924
